FAERS Safety Report 20044797 (Version 2)
Quarter: 2022Q1

REPORT INFORMATION
  Report Type: Spontaneous
  Country: US (occurrence: US)
  Receive Date: 20211108
  Receipt Date: 20220203
  Transmission Date: 20220424
  Serious: Yes (Other)
  Sender: FDA-Public Use
  Company Number: US-PFIZER INC-202101456936

PATIENT
  Age: 89 Year
  Sex: Female

DRUGS (1)
  1. IBRANCE [Suspect]
     Active Substance: PALBOCICLIB
     Indication: Invasive lobular breast carcinoma
     Dosage: 100 MG, UNK

REACTIONS (10)
  - Neutropenia [Unknown]
  - Leukopenia [Unknown]
  - Chronic kidney disease [Unknown]
  - Anaemia [Unknown]
  - Mucosal inflammation [Unknown]
  - Stomatitis [Unknown]
  - Abdominal pain upper [Unknown]
  - Gastritis [Unknown]
  - Osteoporosis [Unknown]
  - Nasopharyngitis [Unknown]
